FAERS Safety Report 4444023-5 (Version None)
Quarter: 2004Q3

REPORT INFORMATION
  Report Type: 
  Country: None (occurrence: None)
  Receive Date: 20040729
  Receipt Date: 20031113
  Transmission Date: 20050211
  Serious: Yes (Hospitalization)
  Sender: FDA-Public Use
  Company Number: US-JNJFOC-20031102837

PATIENT
  Age: 82 Year
  Sex: Female

DRUGS (1)
  1. RISPERDAL [Suspect]
     Dosage: PATIENT USED THIS DRUG 2-3 DAYS

REACTIONS (1)
  - CEREBROVASCULAR ACCIDENT [None]
